FAERS Safety Report 8762034 (Version 1)
Quarter: 2012Q4

REPORT INFORMATION
  Report Type: 
  Country: US (occurrence: US)
  Receive Date: 20120830
  Receipt Date: 20120830
  Transmission Date: 20130627
  Serious: Yes (Hospitalization)
  Sender: FDA-Public Use
  Company Number: US-PFIZER INC-2012182089

PATIENT
  Sex: Female
  Weight: 54.42 kg

DRUGS (5)
  1. VENLAFAXINE HYDROCHLORIDE [Suspect]
     Indication: DEPRESSION
     Dosage: 75mg daily
     Dates: start: 200910
  2. VENLAFAXINE HYDROCHLORIDE [Suspect]
     Indication: ANXIETY
  3. AMBIEN [Suspect]
     Indication: SLEEP DISORDER
     Dosage: 10 mg, daily
  4. KLONOPIN [Suspect]
     Indication: SLEEP DISORDER
     Dosage: 0.5 mg, daily
  5. SEROQUEL [Suspect]
     Indication: SLEEP DISORDER
     Dosage: 25 mg, as needed

REACTIONS (3)
  - Mental disorder [Unknown]
  - Temperature intolerance [Not Recovered/Not Resolved]
  - Memory impairment [Not Recovered/Not Resolved]
